FAERS Safety Report 17323898 (Version 1)
Quarter: 2020Q1

REPORT INFORMATION
  Report Type: Spontaneous
  Country: FR (occurrence: FR)
  Receive Date: 20200127
  Receipt Date: 20200127
  Transmission Date: 20200409
  Serious: Yes (Death)
  Sender: FDA-Public Use
  Company Number: FR-TEVA-2020-FR-1173229

PATIENT
  Age: 0 Day
  Sex: Male

DRUGS (1)
  1. PACLITAXEL. [Suspect]
     Active Substance: PACLITAXEL
     Indication: BREAST CANCER
     Dosage: 80 MG/M2
     Route: 064
     Dates: start: 20190916, end: 20191111

REACTIONS (1)
  - Cerebral haemorrhage neonatal [Fatal]

NARRATIVE: CASE EVENT DATE: 20191111
